FAERS Safety Report 8401508-4 (Version None)
Quarter: 2012Q2

REPORT INFORMATION
  Report Type: 
  Country: None (occurrence: None)
  Receive Date: 20120601
  Receipt Date: 20120522
  Transmission Date: 20120825
  Serious: Yes (Other)
  Sender: FDA-Public Use
  Company Number: US-JNJFOC-20120518845

PATIENT
  Age: 80 Year
  Sex: Male

DRUGS (2)
  1. ZYTIGA [Suspect]
     Indication: PROSTATE CANCER
     Route: 048
  2. PREDNISONE TAB [Suspect]
     Indication: PROSTATE CANCER
     Route: 065

REACTIONS (2)
  - CONFUSIONAL STATE [None]
  - NEUROLOGICAL SYMPTOM [None]
